FAERS Safety Report 5464717-2 (Version None)
Quarter: 2007Q3

REPORT INFORMATION
  Report Type: 
  Country: None (occurrence: None)
  Receive Date: 20070921
  Receipt Date: 20070911
  Transmission Date: 20080115
  Serious: Yes (Other)
  Sender: FDA-Public Use
  Company Number: FR-PFIZER INC-2007013743

PATIENT
  Sex: Male

DRUGS (11)
  1. XALATAN [Suspect]
     Dates: start: 20000101, end: 20061019
  2. PLAVIX [Concomitant]
  3. KARDEGIC [Concomitant]
  4. PERINDOPRIL ERBUMINE [Concomitant]
  5. SECTRAL [Concomitant]
  6. LASIX [Concomitant]
  7. ZOCOR [Concomitant]
  8. CORTANCYL [Concomitant]
  9. IKOREL [Concomitant]
  10. NITRODERM [Concomitant]
  11. ALLOPURINOL [Concomitant]

REACTIONS (1)
  - ANGINA PECTORIS [None]
